FAERS Safety Report 15053375 (Version 1)
Quarter: 2018Q2

REPORT INFORMATION
  Report Type: Spontaneous
  Country: GB (occurrence: GB)
  Receive Date: 20180622
  Receipt Date: 20180622
  Transmission Date: 20180711
  Serious: Yes (Other)
  Sender: FDA-Public Use
  Company Number: GB-BAUSCH-BL-2018-017352

PATIENT
  Age: 74 Year
  Sex: Male

DRUGS (12)
  1. MELPHALAN. [Suspect]
     Active Substance: MELPHALAN
     Dosage: VCD 5 CYCLES
     Route: 065
  2. MELPHALAN. [Suspect]
     Active Substance: MELPHALAN
     Indication: PLASMA CELL MYELOMA
     Dosage: RELAPSE
     Route: 065
     Dates: start: 201608
  3. DEXAMETHASONE. [Suspect]
     Active Substance: DEXAMETHASONE
     Dosage: CYCLOPHOSPHAMIDE THALIDOMIDE DEXAMETHASONE (ATTENUATED) (CTD(A))
     Route: 065
  4. APIXABAN [Concomitant]
     Active Substance: APIXABAN
     Indication: PRODUCT USED FOR UNKNOWN INDICATION
     Route: 065
  5. POMALIDOMIDE [Suspect]
     Active Substance: POMALIDOMIDE
     Indication: PLASMA CELL MYELOMA
     Route: 048
  6. ASPIRIN. [Concomitant]
     Active Substance: ASPIRIN
     Indication: PRODUCT USED FOR UNKNOWN INDICATION
     Route: 065
  7. DEXAMETHASONE. [Suspect]
     Active Substance: DEXAMETHASONE
     Dosage: VCD 5 CYCLES
     Route: 065
  8. MELPHALAN. [Suspect]
     Active Substance: MELPHALAN
     Dosage: CYCLOPHOSPHAMIDE THALIDOMIDE DEXAMETHASONE (ATTENUATED)?(CTD(A))
     Route: 065
  9. DEXAMETHASONE. [Suspect]
     Active Substance: DEXAMETHASONE
     Indication: PLASMA CELL MYELOMA
     Dosage: RELAPSE
     Route: 065
     Dates: start: 201608
  10. MELPHALAN. [Suspect]
     Active Substance: MELPHALAN
     Dosage: INTERMEDIATE DOSE
     Route: 065
  11. DEXAMETHASONE. [Suspect]
     Active Substance: DEXAMETHASONE
     Route: 065
  12. G-CSF [Concomitant]
     Active Substance: GRANULOCYTE COLONY-STIMULATING FACTOR NOS
     Indication: PRODUCT USED FOR UNKNOWN INDICATION
     Dosage: WEEKLY
     Route: 065

REACTIONS (3)
  - Epistaxis [Unknown]
  - Neuropathy peripheral [Unknown]
  - Neutropenia [Unknown]
